FAERS Safety Report 8216966-8 (Version None)
Quarter: 2012Q1

REPORT INFORMATION
  Report Type: 
  Country: None (occurrence: None)
  Receive Date: 20120319
  Receipt Date: 20120309
  Transmission Date: 20120608
  Serious: Yes (Hospitalization)
  Sender: FDA-Public Use
  Company Number: US-AMGEN-USASP2012015615

PATIENT
  Age: 63 Year
  Sex: Male

DRUGS (1)
  1. ENBREL [Suspect]
     Indication: PSORIASIS
     Dosage: 50 MG, 2 TIMES/WK
     Dates: start: 20080504, end: 20111031

REACTIONS (5)
  - INJECTION SITE PAIN [None]
  - ARTHROPATHY [None]
  - KNEE ARTHROPLASTY [None]
  - ARTHRALGIA [None]
  - CHONDROPATHY [None]
